FAERS Safety Report 5352062-5 (Version None)
Quarter: 2007Q2

REPORT INFORMATION
  Report Type: 
  Country: None (occurrence: None)
  Receive Date: 20070611
  Receipt Date: 20070605
  Transmission Date: 20071010
  Serious: Yes (Hospitalization)
  Sender: FDA-Public Use
  Company Number: JP-BAYER-200710373BYL

PATIENT
  Age: 74 Year
  Sex: Female
  Weight: 37 kg

DRUGS (7)
  1. ASPIRIN [Suspect]
     Dosage: TOTAL DAILY DOSE: 100 MG  UNIT DOSE: 100 MG
     Route: 048
     Dates: start: 20060401, end: 20070524
  2. FOSAMAC 35MG [Concomitant]
     Dosage: UNIT DOSE: 35 MG
     Route: 048
     Dates: start: 20070101
  3. TANATRIL [Concomitant]
     Route: 048
     Dates: start: 20020523, end: 20070524
  4. ONEALFA [Concomitant]
     Route: 048
     Dates: start: 20070403, end: 20070524
  5. URSO 250 [Concomitant]
     Route: 048
     Dates: start: 20000208
  6. SEDIEL [Concomitant]
     Route: 048
     Dates: end: 20070524
  7. RHYTHMY [Concomitant]
     Route: 048
     Dates: start: 20030325, end: 20070524

REACTIONS (5)
  - COUGH [None]
  - DYSPNOEA [None]
  - INTERSTITIAL LUNG DISEASE [None]
  - PYREXIA [None]
  - SPUTUM ABNORMAL [None]
